FAERS Safety Report 22287366 (Version 2)
Quarter: 2023Q2

REPORT INFORMATION
  Report Type: Spontaneous
  Country: BE (occurrence: BE)
  Receive Date: 20230505
  Receipt Date: 20230526
  Transmission Date: 20230722
  Serious: Yes (Other)
  Sender: FDA-Public Use
  Company Number: None

PATIENT
  Age: 66 Year
  Sex: Male

DRUGS (2)
  1. TOCILIZUMAB [Suspect]
     Active Substance: TOCILIZUMAB
     Indication: Rheumatoid arthritis
     Dosage: 1 INJECTION EVERY 15 DAYS
     Route: 058
     Dates: start: 20180511, end: 20230227
  2. ACETAMINOPHEN [Concomitant]
     Active Substance: ACETAMINOPHEN

REACTIONS (48)
  - Cellulitis [Unknown]
  - Stomatitis [Unknown]
  - Headache [Unknown]
  - Upper respiratory tract infection [Recovered/Resolved]
  - Nephrolithiasis [Unknown]
  - Pneumonia [Unknown]
  - Blood fibrinogen decreased [Unknown]
  - Dizziness [Unknown]
  - Tonsillitis [Unknown]
  - Nausea [Unknown]
  - Pyrexia [Unknown]
  - Platelet count decreased [Unknown]
  - Diverticulitis [Unknown]
  - Dyspnoea [Unknown]
  - Hepatic failure [Unknown]
  - White blood cell count decreased [Unknown]
  - Pyrexia [Unknown]
  - Dyslipidaemia [Unknown]
  - Constipation [Unknown]
  - Oedema peripheral [Unknown]
  - Hepatitis [Unknown]
  - Chills [Unknown]
  - Hypersensitivity [Unknown]
  - Conjunctivitis [Unknown]
  - Jaundice [Unknown]
  - Cough [Recovered/Resolved]
  - Nasal obstruction [Unknown]
  - Abdominal pain upper [Unknown]
  - Rash [Unknown]
  - Anaphylactic reaction [Unknown]
  - Hepatic function abnormal [Unknown]
  - Urticaria [Unknown]
  - Gastric ulcer [Unknown]
  - Red blood cell count decreased [Unknown]
  - Hypertension [Unknown]
  - Blood bilirubin decreased [Unknown]
  - Oral herpes [Unknown]
  - Diarrhoea [Unknown]
  - Injection site reaction [Unknown]
  - Stevens-Johnson syndrome [Unknown]
  - Hypothyroidism [Unknown]
  - Weight increased [Unknown]
  - General physical health deterioration [Recovered/Resolved]
  - Eye irritation [Recovered/Resolved]
  - Epistaxis [Recovered/Resolved]
  - Pain in extremity [Recovered/Resolved]
  - Burning sensation [Recovered/Resolved]
  - Gait disturbance [Recovered/Resolved]

NARRATIVE: CASE EVENT DATE: 20180531
